FAERS Safety Report 17925804 (Version 1)
Quarter: 2020Q2

REPORT INFORMATION
  Report Type: Report from Study
  Country: IL (occurrence: IL)
  Receive Date: 20200622
  Receipt Date: 20200622
  Transmission Date: 20200714
  Serious: Yes (Other)
  Sender: FDA-Public Use
  Company Number: IL-SEATTLE GENETICS-2020SGN02719

PATIENT

DRUGS (1)
  1. BRENTUXIMAB VEDOTIN-MPI [Suspect]
     Active Substance: BRENTUXIMAB VEDOTIN
     Indication: HODGKIN^S DISEASE
     Route: 042

REACTIONS (6)
  - Progressive multifocal leukoencephalopathy [Unknown]
  - Hodgkin^s disease [Unknown]
  - Anaphylactic reaction [Unknown]
  - Off label use [Unknown]
  - Stevens-Johnson syndrome [Unknown]
  - Neuropathy peripheral [Unknown]
